FAERS Safety Report 20633778 (Version 1)
Quarter: 2022Q1

REPORT INFORMATION
  Report Type: Spontaneous
  Country: DE (occurrence: DE)
  Receive Date: 20220324
  Receipt Date: 20220324
  Transmission Date: 20220424
  Serious: Yes (Death, Life-Threatening, Hospitalization, Other)
  Sender: FDA-Public Use
  Company Number: DE-002147023-NVSC2020DE360798

PATIENT
  Age: 69 Year
  Sex: Female
  Weight: 71 kg

DRUGS (45)
  1. AMLODIPINE BESYLATE [Suspect]
     Active Substance: AMLODIPINE BESYLATE
     Dosage: UNK
     Route: 065
     Dates: start: 201803
  2. AMLODIPINE BESYLATE [Suspect]
     Active Substance: AMLODIPINE BESYLATE
     Dosage: 5 MG
     Route: 065
     Dates: start: 2013, end: 2018
  3. AMLODIPINE BESYLATE [Suspect]
     Active Substance: AMLODIPINE BESYLATE
     Dosage: 5 MG
     Route: 065
     Dates: start: 2016, end: 2017
  4. AMLODIPINE BESYLATE [Suspect]
     Active Substance: AMLODIPINE BESYLATE
     Dosage: 5 MG, 2X/DAY
     Route: 065
     Dates: start: 20180523, end: 20180612
  5. DIOVAN [Suspect]
     Active Substance: VALSARTAN
     Route: 065
     Dates: start: 2011, end: 2013
  6. DIOVAN [Suspect]
     Active Substance: VALSARTAN
     Dosage: 1X 160, 2 DOSAGE FORM, QD
     Route: 065
     Dates: start: 201310
  7. DIOVAN [Suspect]
     Active Substance: VALSARTAN
     Dosage: 1X 80, QD
     Route: 065
     Dates: start: 201001, end: 201302
  8. DIOVAN [Suspect]
     Active Substance: VALSARTAN
     Dosage: 1 DOSAGE FORM, QD, 1/2 X 160 MG
     Route: 065
     Dates: start: 2013
  9. DIOVAN [Suspect]
     Active Substance: VALSARTAN
     Dosage: 1 DOSAGE FORM, QD (1/2 X 160 )
     Route: 065
     Dates: start: 20130215, end: 201310
  10. DIOVAN [Suspect]
     Active Substance: VALSARTAN
     Dosage: 160 MG
     Route: 065
     Dates: start: 2013, end: 2013
  11. DIOVAN [Suspect]
     Active Substance: VALSARTAN
     Dosage: 1 DOSAGE FORM, QD (1X 160 MG)
     Route: 065
     Dates: start: 201302
  12. LEVOTHYROXINE SODIUM [Suspect]
     Active Substance: LEVOTHYROXINE SODIUM
     Route: 065
     Dates: start: 2014, end: 2018
  13. LEVOTHYROXINE SODIUM [Suspect]
     Active Substance: LEVOTHYROXINE SODIUM
     Dosage: UNK
     Route: 065
     Dates: start: 20180524, end: 20180612
  14. VALSARTAN [Suspect]
     Active Substance: VALSARTAN
     Route: 065
     Dates: start: 2005
  15. VALSARTAN [Suspect]
     Active Substance: VALSARTAN
     Dosage: 320 MG (1/2 A TABLET OF 320 MG), BID
     Route: 048
  16. VALSARTAN [Suspect]
     Active Substance: VALSARTAN
     Route: 065
     Dates: start: 201005
  17. VALSARTAN [Suspect]
     Active Substance: VALSARTAN
     Dosage: 160 MG
     Route: 065
     Dates: start: 2017, end: 2018
  18. VALSARTAN [Suspect]
     Active Substance: VALSARTAN
     Route: 065
     Dates: start: 2013
  19. VALSARTAN [Suspect]
     Active Substance: VALSARTAN
     Route: 065
     Dates: start: 2014
  20. VALSARTAN [Suspect]
     Active Substance: VALSARTAN
     Dosage: 160 MG
     Route: 065
     Dates: start: 201312, end: 2017
  21. BISOPROLOL [Suspect]
     Active Substance: BISOPROLOL
     Route: 065
     Dates: start: 2014, end: 2018
  22. BISOPROLOL [Suspect]
     Active Substance: BISOPROLOL
     Route: 065
     Dates: start: 200903
  23. PREDNISOLONE [Suspect]
     Active Substance: PREDNISOLONE
     Route: 065
  24. FERROUS GLUCONATE [Concomitant]
     Active Substance: FERROUS GLUCONATE
     Dosage: 1 DOSAGE FORM, QD
     Route: 065
  25. HYDROMORPHONE [Concomitant]
     Active Substance: HYDROMORPHONE
     Dosage: 2 MG
     Route: 065
     Dates: start: 201902
  26. FUROSEMIDE [Concomitant]
     Active Substance: FUROSEMIDE
     Dosage: 1 X 40 MG, 2 DOSAGE FORM, QD
     Route: 065
     Dates: start: 201903
  27. FENTANYL [Concomitant]
     Active Substance: FENTANYL
     Route: 065
     Dates: start: 201903
  28. LEVOTHYROXINE SODIUM [Concomitant]
     Active Substance: LEVOTHYROXINE SODIUM
     Route: 065
     Dates: start: 2016
  29. BISOPROLOL FUMARATE\HYDROCHLOROTHIAZIDE [Concomitant]
     Active Substance: BISOPROLOL FUMARATE\HYDROCHLOROTHIAZIDE
     Route: 065
     Dates: end: 201302
  30. PANTOPRAZOLE [Concomitant]
     Active Substance: PANTOPRAZOLE
     Dosage: 40 MG
     Route: 065
     Dates: start: 201901
  31. PANTOPRAZOLE [Concomitant]
     Active Substance: PANTOPRAZOLE
     Dosage: 1 DOSAGE FORM, QD (1X 40, MORNING)
     Route: 065
  32. HALOPERIDOL [Concomitant]
     Active Substance: HALOPERIDOL
     Dosage: 30 ML
     Route: 065
     Dates: start: 201902
  33. EUTHYROX [Concomitant]
     Active Substance: LEVOTHYROXINE SODIUM
     Route: 065
  34. IBUPROFEN [Concomitant]
     Active Substance: IBUPROFEN
     Route: 065
  35. MOMETASONE [Concomitant]
     Active Substance: MOMETASONE
     Route: 065
  36. TAVOR (LORAZEPAM) [Concomitant]
     Active Substance: LORAZEPAM
     Route: 065
     Dates: start: 201902
  37. LEVOTHYROXINE [Concomitant]
     Active Substance: LEVOTHYROXINE
     Route: 065
     Dates: start: 199003, end: 2018
  38. BISOPROLOL [Concomitant]
     Active Substance: BISOPROLOL
     Route: 048
     Dates: start: 20180524
  39. BISOPROLOL [Concomitant]
     Active Substance: BISOPROLOL
     Route: 065
     Dates: start: 20180612
  40. DIGITOXIN [Concomitant]
     Active Substance: DIGITOXIN
     Route: 065
     Dates: start: 201901
  41. ACETAMINOPHEN [Concomitant]
     Active Substance: ACETAMINOPHEN
     Dosage: 1000 MG
     Route: 065
     Dates: start: 201903
  42. VALSARTAN [Concomitant]
     Active Substance: VALSARTAN
     Route: 065
     Dates: start: 201702
  43. HYDROCHLOROTHIAZIDE [Concomitant]
     Active Substance: HYDROCHLOROTHIAZIDE
     Route: 048
     Dates: start: 20180524, end: 20180524
  44. POLYETHYLENE GLYCOLS [Concomitant]
     Active Substance: POLYETHYLENE GLYCOLS
     Route: 065
     Dates: start: 201902
  45. MIDAZOLAM [Concomitant]
     Active Substance: MIDAZOLAM
     Route: 065
     Dates: start: 201903

REACTIONS (84)
  - Death [Fatal]
  - Renal cell carcinoma [Not Recovered/Not Resolved]
  - Renal neoplasm [Recovered/Resolved]
  - Aphasia [Recovering/Resolving]
  - Confusional state [Unknown]
  - Coordination abnormal [Recovering/Resolving]
  - Cognitive disorder [Recovering/Resolving]
  - Memory impairment [Recovering/Resolving]
  - Osteoarthritis [Recovered/Resolved]
  - Gait disturbance [Unknown]
  - Asthenia [Unknown]
  - Basal cell carcinoma [Recovered/Resolved]
  - Bradycardia [Unknown]
  - Nephrogenic anaemia [Unknown]
  - Hypokalaemia [Unknown]
  - Cardiac failure [Unknown]
  - Myocardial ischaemia [Unknown]
  - Ischaemia [Unknown]
  - Tendon rupture [Unknown]
  - Ventricular tachycardia [Unknown]
  - Arrhythmia [Unknown]
  - Atrial fibrillation [Unknown]
  - Ventricular extrasystoles [Unknown]
  - Left ventricular hypertrophy [Unknown]
  - Chronic kidney disease [Unknown]
  - Loss of consciousness [Unknown]
  - Diabetes mellitus [Unknown]
  - Hypothyroidism [Unknown]
  - Cataract [Unknown]
  - Erysipelas [Recovering/Resolving]
  - Blood pressure inadequately controlled [Unknown]
  - Urinary retention [Unknown]
  - Dizziness [Unknown]
  - Erythema [Recovering/Resolving]
  - Erythema induratum [Unknown]
  - Anaemia [Unknown]
  - Inflammation [Unknown]
  - Drug intolerance [Unknown]
  - Dyspnoea [Unknown]
  - Cerumen impaction [Unknown]
  - Drug ineffective [Unknown]
  - Varicose vein [Unknown]
  - Oedema peripheral [Recovering/Resolving]
  - Abscess [Unknown]
  - Pruritus [Unknown]
  - Iron deficiency [Unknown]
  - Anal incontinence [Not Recovered/Not Resolved]
  - Anal prolapse [Unknown]
  - Productive cough [Unknown]
  - Pustule [Unknown]
  - Abdominal distension [Unknown]
  - Dysuria [Recovered/Resolved]
  - Aphthous ulcer [Unknown]
  - Pleural effusion [Recovered/Resolved]
  - Renal cyst [Unknown]
  - Tinnitus [Unknown]
  - Nocturia [Unknown]
  - Rash [Unknown]
  - Insomnia [Unknown]
  - Arthralgia [Recovering/Resolving]
  - Blood glucose abnormal [Unknown]
  - Fibroma [Unknown]
  - Weight increased [Recovering/Resolving]
  - Joint swelling [Unknown]
  - Gastroenteritis [Unknown]
  - Urinary tract infection [Recovered/Resolved]
  - Weight decreased [Unknown]
  - Seborrhoeic keratosis [Unknown]
  - Diarrhoea [Unknown]
  - Dyschezia [Unknown]
  - Tachycardia [Unknown]
  - Urinary incontinence [Not Recovered/Not Resolved]
  - Visual impairment [Unknown]
  - Vomiting [Unknown]
  - Adenoma benign [Recovered/Resolved]
  - Haemorrhoids [Unknown]
  - General physical health deterioration [Recovering/Resolving]
  - Hypersensitivity [Unknown]
  - Dermatosis [Unknown]
  - Meniscus injury [Unknown]
  - Abdominal pain [Unknown]
  - Fatigue [Unknown]
  - Colon adenoma [Unknown]
  - Gastrointestinal procedural complication [Unknown]

NARRATIVE: CASE EVENT DATE: 20070101
